FAERS Safety Report 19844782 (Version 1)
Quarter: 2021Q3

REPORT INFORMATION
  Report Type: Spontaneous
  Country: TR (occurrence: TR)
  Receive Date: 20210917
  Receipt Date: 20210917
  Transmission Date: 20211014
  Serious: Yes (Life-Threatening, Hospitalization, Other)
  Sender: FDA-Public Use
  Company Number: TR-TOPROL-2014000001

PATIENT
  Age: 32 Year
  Sex: Female

DRUGS (1)
  1. METOPROLOL SUCCINATE. [Suspect]
     Active Substance: METOPROLOL SUCCINATE
     Dosage: 475 MG (A POTENTIALLY TOXIC DOSE WHICH IS N GREATER?THAN 450 MG)
     Route: 048

REACTIONS (3)
  - Toxicity to various agents [Unknown]
  - Pancreatitis [Unknown]
  - Suicide attempt [Unknown]
